FAERS Safety Report 7069842-0 (Version None)
Quarter: 2010Q4

REPORT INFORMATION
  Report Type: 
  Country: None (occurrence: None)
  Receive Date: 20101028
  Receipt Date: 20100618
  Transmission Date: 20110411
  Serious: No
  Sender: FDA-Public Use
  Company Number: US-WYE-H16064110

PATIENT
  Age: 54 Year
  Sex: Female
  Weight: 81.72 kg

DRUGS (2)
  1. ADVIL [Suspect]
     Indication: ARTHRALGIA
     Route: 048
     Dates: start: 20100501, end: 20100601
  2. MULTI-VITAMINS [Concomitant]

REACTIONS (2)
  - COELIAC DISEASE [None]
  - CONDITION AGGRAVATED [None]
